FAERS Safety Report 6629395-5 (Version None)
Quarter: 2010Q1

REPORT INFORMATION
  Report Type: 
  Country: None (occurrence: None)
  Receive Date: 20100311
  Receipt Date: 20090713
  Transmission Date: 20100710
  Serious: No
  Sender: FDA-Public Use
  Company Number: US-BIOGENIDEC-2009BI021776

PATIENT
  Sex: Female

DRUGS (1)
  1. AVONEX [Suspect]
     Indication: MULTIPLE SCLEROSIS
     Route: 030
     Dates: start: 20080101

REACTIONS (5)
  - HOT FLUSH [None]
  - INJECTION SITE DISCOLOURATION [None]
  - MENSTRUATION IRREGULAR [None]
  - PAIN IN EXTREMITY [None]
  - PERIPHERAL COLDNESS [None]
